FAERS Safety Report 6257550-5 (Version None)
Quarter: 2009Q3

REPORT INFORMATION
  Report Type: 
  Country: None (occurrence: None)
  Receive Date: 20090706
  Receipt Date: 20090626
  Transmission Date: 20100115
  Serious: Yes (Other)
  Sender: FDA-Public Use
  Company Number: PHHY2009JP12348

PATIENT
  Age: 50 Year
  Sex: Male

DRUGS (3)
  1. NEORAL [Suspect]
     Indication: HEART TRANSPLANT
     Route: 048
  2. CELLCEPT [Suspect]
     Indication: HEART TRANSPLANT
     Dosage: UNK
     Route: 048
     Dates: end: 20080701
  3. PREDNISOLONE [Suspect]
     Indication: HEART TRANSPLANT
     Dosage: UNK
     Route: 048
     Dates: end: 20070101

REACTIONS (7)
  - CORONARY ARTERY DISEASE [None]
  - CYTOMEGALOVIRUS INFECTION [None]
  - HEART TRANSPLANT REJECTION [None]
  - INTERLEUKIN-2 RECEPTOR INCREASED [None]
  - LEUKOPENIA [None]
  - LYMPHOMA [None]
  - VIRAL DNA TEST POSITIVE [None]
